FAERS Safety Report 17855213 (Version 1)
Quarter: 2020Q2

REPORT INFORMATION
  Report Type: Spontaneous
  Country: US (occurrence: US)
  Receive Date: 20200603
  Receipt Date: 20200603
  Transmission Date: 20200714
  Serious: Yes (Hospitalization)
  Sender: FDA-Public Use
  Company Number: None

PATIENT
  Age: 29 Year
  Sex: Male
  Weight: 88.9 kg

DRUGS (4)
  1. CLOZAPINE. [Suspect]
     Active Substance: CLOZAPINE
  2. DIVALPVOEX NA [Concomitant]
     Route: 048
  3. SERTRALINE [Concomitant]
     Active Substance: SERTRALINE HYDROCHLORIDE
     Route: 048
  4. ARIPIPRAZOLE MAINTENA [Concomitant]

REACTIONS (4)
  - Drug level increased [None]
  - Heart rate increased [None]
  - Atrial fibrillation [None]
  - Ejection fraction decreased [None]

NARRATIVE: CASE EVENT DATE: 20200303
